FAERS Safety Report 7687161-6 (Version None)
Quarter: 2011Q3

REPORT INFORMATION
  Report Type: 
  Country: None (occurrence: None)
  Receive Date: 20110816
  Receipt Date: 20110816
  Transmission Date: 20111222
  Serious: Yes (Hospitalization)
  Sender: FDA-Public Use
  Company Number: PHHO2010JP10244

PATIENT
  Sex: Female
  Weight: 49 kg

DRUGS (18)
  1. GLEEVEC [Suspect]
     Indication: PULMONARY HYPERTENSION
     Dosage: 100 MG, UNK
     Route: 048
     Dates: start: 20100527, end: 20100611
  2. NAUZELIN [Concomitant]
  3. OLOPATADINE HCL [Concomitant]
  4. GASMOTIN [Concomitant]
  5. SLOW-K [Concomitant]
  6. WARFARIN SODIUM [Concomitant]
  7. PRIMPERAN TAB [Concomitant]
  8. GLEEVEC [Suspect]
     Dosage: UNK
     Dates: start: 20100615
  9. ALDACTONE [Concomitant]
  10. CLOBETASOL PROPIONATE [Concomitant]
  11. TRICHLORMETHIAZIDE [Concomitant]
  12. GLEEVEC [Suspect]
     Dosage: UNK
     Dates: end: 20100702
  13. EPINASTINE HYDROCHLORIDE [Concomitant]
  14. LASIX [Concomitant]
  15. EURAX [Concomitant]
  16. GLEEVEC [Suspect]
     Dosage: UNK
     Dates: start: 20100612, end: 20100614
  17. FLOLAN [Concomitant]
  18. REVATIO [Concomitant]

REACTIONS (6)
  - PROTHROMBIN TIME SHORTENED [None]
  - CARDIAC FAILURE [None]
  - COAGULOPATHY [None]
  - OEDEMA PERIPHERAL [None]
  - RASH [None]
  - DEHYDRATION [None]
